FAERS Safety Report 13215413 (Version 1)
Quarter: 2017Q1

REPORT INFORMATION
  Report Type: Spontaneous
  Country: US (occurrence: US)
  Receive Date: 20170210
  Receipt Date: 20170210
  Transmission Date: 20170428
  Serious: No
  Sender: FDA-Public Use
  Company Number: US-ROCHE-1759105

PATIENT
  Sex: Female

DRUGS (5)
  1. ALBUTEROL. [Concomitant]
     Active Substance: ALBUTEROL
  2. XOLAIR [Suspect]
     Active Substance: OMALIZUMAB
     Indication: PRODUCT USED FOR UNKNOWN INDICATION
     Dosage: 150 MG SDV
     Route: 065
     Dates: start: 201603
  3. ZETIA [Concomitant]
     Active Substance: EZETIMIBE
  4. ZOCOR [Concomitant]
     Active Substance: SIMVASTATIN
  5. HUMALOG [Concomitant]
     Active Substance: INSULIN LISPRO

REACTIONS (3)
  - Pain [Unknown]
  - Joint range of motion decreased [Unknown]
  - Injection site reaction [Unknown]
